FAERS Safety Report 12269298 (Version 1)
Quarter: 2016Q2

REPORT INFORMATION
  Report Type: Spontaneous
  Country: US (occurrence: US)
  Receive Date: 20160414
  Receipt Date: 20160414
  Transmission Date: 20160815
  Serious: No
  Sender: FDA-Public Use
  Company Number: US-BAUSCH-BL-2015-022364

PATIENT
  Age: 73 Year
  Sex: Male

DRUGS (6)
  1. PRAVACHOL 40 MG [Concomitant]
     Indication: BLOOD CHOLESTEROL INCREASED
     Route: 048
  2. VITAMIN C [Concomitant]
     Active Substance: ASCORBIC ACID
     Indication: SUPPLEMENTATION THERAPY
     Route: 048
  3. KLONOPIN [Concomitant]
     Active Substance: CLONAZEPAM
     Indication: RESTLESS LEGS SYNDROME
     Dosage: HALF TABLET AT BEDTIME
     Route: 048
  4. FLUNISOLIDE NASAL SOLUTION USP 0.025% [Suspect]
     Active Substance: FLUNISOLIDE
     Indication: RHINITIS
     Dates: start: 2012
  5. LOVAZA [Concomitant]
     Active Substance: OMEGA-3-ACID ETHYL ESTERS
     Indication: BLOOD TRIGLYCERIDES INCREASED
     Route: 048
  6. ASPIRIN 81 MG [Concomitant]
     Active Substance: ASPIRIN
     Indication: PRODUCT USED FOR UNKNOWN INDICATION
     Route: 048

REACTIONS (1)
  - Throat irritation [Recovered/Resolved]

NARRATIVE: CASE EVENT DATE: 201509
